FAERS Safety Report 16059025 (Version 1)
Quarter: 2019Q1

REPORT INFORMATION
  Report Type: Spontaneous
  Country: BR (occurrence: BR)
  Receive Date: 20190311
  Receipt Date: 20190311
  Transmission Date: 20190418
  Serious: Yes (Hospitalization, Other)
  Sender: FDA-Public Use
  Company Number: BR-SA-2019SA003986

PATIENT
  Sex: Female

DRUGS (2)
  1. CLEXANE [Suspect]
     Active Substance: ENOXAPARIN SODIUM
     Indication: PRODUCT USED FOR UNKNOWN INDICATION
     Dosage: 40 MG, BID
     Route: 065
     Dates: start: 2018
  2. RIVAROXABAN [Suspect]
     Active Substance: RIVAROXABAN
     Indication: PRODUCT USED FOR UNKNOWN INDICATION
     Dosage: UNK
     Route: 065

REACTIONS (23)
  - Muscular weakness [Unknown]
  - Erythema [Unknown]
  - Incisional hernia [Unknown]
  - Asthenia [Unknown]
  - Anaemia [Unknown]
  - Unevaluable event [Unknown]
  - Hypersensitivity [Unknown]
  - Antiphospholipid syndrome [Unknown]
  - Peripheral swelling [Unknown]
  - Eating disorder [Unknown]
  - Premature labour [Unknown]
  - Lupus-like syndrome [Unknown]
  - Depression [Unknown]
  - Crying [Unknown]
  - Intestinal obstruction [Unknown]
  - Cough [Unknown]
  - Exposure during pregnancy [Unknown]
  - Haemorrhage [Unknown]
  - Suture related complication [Unknown]
  - Dyspnoea [Unknown]
  - Suppressed lactation [Unknown]
  - Pulmonary embolism [Unknown]
  - Gestational diabetes [Unknown]

NARRATIVE: CASE EVENT DATE: 201804
